FAERS Safety Report 25085657 (Version 2)
Quarter: 2025Q1

REPORT INFORMATION
  Report Type: Spontaneous
  Country: US (occurrence: US)
  Receive Date: 20250317
  Receipt Date: 20250321
  Transmission Date: 20250409
  Serious: No
  Sender: MERCK SHARP & DOHME LLC
  Company Number: US-009507513-2258494

PATIENT
  Age: 51 Year
  Sex: Female
  Weight: 79.4 kg

DRUGS (39)
  1. WINREVAIR [Suspect]
     Active Substance: SOTATERCEPT-CSRK
     Indication: Product used for unknown indication
     Dates: start: 2024
  2. WINREVAIR [Suspect]
     Active Substance: SOTATERCEPT-CSRK
  3. WINREVAIR [Suspect]
     Active Substance: SOTATERCEPT-CSRK
  4. WINREVAIR [Suspect]
     Active Substance: SOTATERCEPT-CSRK
  5. ORENITRAM [Suspect]
     Active Substance: TREPROSTINIL
     Indication: Pulmonary arterial hypertension
     Dosage: 1 TABLET OF 5 MG AND 4 TABLETS OF 1 MG
     Route: 048
  6. ORENITRAM [Suspect]
     Active Substance: TREPROSTINIL
     Indication: Pulmonary arterial hypertension
     Route: 048
  7. ORENITRAM [Suspect]
     Active Substance: TREPROSTINIL
     Indication: Pulmonary arterial hypertension
     Route: 048
     Dates: start: 20150819
  8. NURTEC ODT [Concomitant]
     Active Substance: RIMEGEPANT SULFATE
  9. OPSUMIT [Concomitant]
     Active Substance: MACITENTAN
  10. CEPHALEXIN [Concomitant]
     Active Substance: CEPHALEXIN
  11. OXYGEN [Concomitant]
     Active Substance: OXYGEN
  12. ZYVOX [Concomitant]
     Active Substance: LINEZOLID
  13. ASPIRIN [Concomitant]
     Active Substance: ASPIRIN
  14. FUROSEMIDE [Concomitant]
     Active Substance: FUROSEMIDE
  15. TRAZODONE HCL [Concomitant]
     Active Substance: TRAZODONE HYDROCHLORIDE
  16. ATROPINE\DIPHENOXYLATE [Concomitant]
     Active Substance: ATROPINE\DIPHENOXYLATE
  17. TADALAFIL [Concomitant]
     Active Substance: TADALAFIL
  18. Hair skin nails [Concomitant]
  19. VITAMINS [Concomitant]
     Active Substance: VITAMINS
  20. MELATONIN [Concomitant]
     Active Substance: MELATONIN
  21. SYNTHROID [Concomitant]
     Active Substance: LEVOTHYROXINE SODIUM
  22. INSULIN LISPRO [Concomitant]
     Active Substance: INSULIN LISPRO
  23. IMODIUM [Concomitant]
     Active Substance: LOPERAMIDE HYDROCHLORIDE
  24. ZITHROMAX [Concomitant]
     Active Substance: AZITHROMYCIN DIHYDRATE
  25. TRICOR [Concomitant]
     Active Substance: FENOFIBRATE
  26. ESTRADIOL [Concomitant]
     Active Substance: ESTRADIOL
  27. LOVAZA [Concomitant]
     Active Substance: OMEGA-3-ACID ETHYL ESTERS
  28. CLARITIN [Concomitant]
     Active Substance: LORATADINE
  29. GLUMETZA [Concomitant]
     Active Substance: METFORMIN HYDROCHLORIDE
  30. LYRICA [Concomitant]
     Active Substance: PREGABALIN
  31. PROGESTERONE [Concomitant]
     Active Substance: PROGESTERONE
  32. ATORVASTATIN CALCIUM [Concomitant]
     Active Substance: ATORVASTATIN CALCIUM
  33. LYUMJEV [Concomitant]
     Active Substance: INSULIN LISPRO-AABC
  34. PANTOPRAZOLE SODIUM [Concomitant]
     Active Substance: PANTOPRAZOLE SODIUM
  35. COLESTIPOL HYDROCHLORIDE [Concomitant]
     Active Substance: COLESTIPOL HYDROCHLORIDE
  36. SUCRALFATE [Concomitant]
     Active Substance: SUCRALFATE
  37. ALLOPURINOL [Concomitant]
     Active Substance: ALLOPURINOL
  38. OMEPRAZOLE [Concomitant]
     Active Substance: OMEPRAZOLE
  39. POTASSIUM CHLORIDE [Concomitant]
     Active Substance: POTASSIUM CHLORIDE

REACTIONS (3)
  - Migraine [Not Recovered/Not Resolved]
  - Dizziness [Unknown]
  - Weight increased [Unknown]

NARRATIVE: CASE EVENT DATE: 20240601
